FAERS Safety Report 4802950-0 (Version None)
Quarter: 2005Q4

REPORT INFORMATION
  Report Type: 
  Country: None (occurrence: None)
  Receive Date: 20051013
  Receipt Date: 20050929
  Transmission Date: 20060501
  Serious: Yes (Death, Life-Threatening, Hospitalization, Other)
  Sender: FDA-Public Use
  Company Number: 2005110131

PATIENT
  Age: 70 Year
  Sex: Male

DRUGS (8)
  1. CELEBREX [Suspect]
     Indication: SPONDYLITIS
     Dosage: 400 MG (200 MG, 2 IN 1 D), ORAL
     Route: 048
     Dates: start: 20000601
  2. VIOXX [Suspect]
     Indication: ILL-DEFINED DISORDER
  3. DIOVAN HCT [Concomitant]
  4. VERAPAMIL [Concomitant]
  5. SIMVASTATIN [Concomitant]
  6. DICLOFENAC SODIUM [Concomitant]
  7. ACEMETACIN (ACEMETACIN) [Concomitant]
  8. TRANCOPAL DOLO (FLUPIRITINE MALEATE) [Concomitant]

REACTIONS (5)
  - LIVIDITY [None]
  - LOSS OF CONSCIOUSNESS [None]
  - MYOCARDIAL INFARCTION [None]
  - PULSE ABSENT [None]
  - VENTRICULAR FIBRILLATION [None]
